FAERS Safety Report 5126604-9 (Version None)
Quarter: 2006Q4

REPORT INFORMATION
  Report Type: 
  Country: None (occurrence: None)
  Receive Date: 20061012
  Receipt Date: 20061012
  Transmission Date: 20070319
  Serious: Yes (Hospitalization)
  Sender: FDA-Public Use
  Company Number: None

PATIENT
  Age: 70 Year
  Sex: Male
  Weight: 46.4 kg

DRUGS (2)
  1. CLOPIDOGREL [Suspect]
     Indication: CEREBROVASCULAR ACCIDENT PROPHYLAXIS
     Dosage: 75MG,75MG QD, ORAL
     Route: 048
     Dates: start: 20051102, end: 20060918
  2. COLCHICINE [Concomitant]

REACTIONS (1)
  - THROMBOCYTOPENIA [None]
